FAERS Safety Report 6750985-3 (Version None)
Quarter: 2010Q2

REPORT INFORMATION
  Report Type: 
  Country: None (occurrence: None)
  Receive Date: 20100528
  Receipt Date: 20100520
  Transmission Date: 20101027
  Serious: Yes (Hospitalization, Other)
  Sender: FDA-Public Use
  Company Number: CL-120-2010

PATIENT
  Age: 58 Year
  Sex: Male

DRUGS (6)
  1. CIPROFLOXACIN [Suspect]
     Indication: WOUND INFECTION
     Dosage: 500 MG BD ORAL USE
     Route: 048
  2. ATORVASTATIN CALCIUM [Suspect]
     Dosage: 400 MG OD
  3. FUSIDIC ACID [Suspect]
     Indication: WOUND INFECTION
     Dosage: 500 TDS
  4. BISOPROLOL [Concomitant]
  5. FRUSEMIDE [Concomitant]
  6. ASPIRIN [Concomitant]

REACTIONS (14)
  - ALANINE AMINOTRANSFERASE INCREASED [None]
  - ASPARTATE AMINOTRANSFERASE INCREASED [None]
  - BLOOD LACTATE DEHYDROGENASE INCREASED [None]
  - BODY TEMPERATURE DECREASED [None]
  - DRUG INTERACTION [None]
  - DRUG LEVEL INCREASED [None]
  - DYSPNOEA [None]
  - LEFT VENTRICULAR DYSFUNCTION [None]
  - LIVEDO RETICULARIS [None]
  - OXYGEN SATURATION DECREASED [None]
  - PAIN IN EXTREMITY [None]
  - PERIPHERAL COLDNESS [None]
  - RHABDOMYOLYSIS [None]
  - VENTRICULAR EXTRASYSTOLES [None]
